FAERS Safety Report 7938762-9 (Version None)
Quarter: 2011Q4

REPORT INFORMATION
  Report Type: 
  Country: None (occurrence: None)
  Receive Date: 20111124
  Receipt Date: 20111121
  Transmission Date: 20120403
  Serious: No
  Sender: FDA-Public Use
  Company Number: US-BIOGENIDEC-2011BI043722

PATIENT
  Age: 40 Year
  Sex: Female

DRUGS (7)
  1. TYSABRI [Suspect]
     Route: 042
     Dates: start: 20100928, end: 20101117
  2. AVONEX [Concomitant]
     Route: 030
     Dates: start: 20081110
  3. TYSABRI [Suspect]
     Route: 042
     Dates: start: 20090612, end: 20100318
  4. BENADRYL [Concomitant]
     Indication: PREMEDICATION
     Route: 042
  5. TYSABRI [Suspect]
     Indication: MULTIPLE SCLEROSIS
     Route: 042
     Dates: start: 20111014, end: 20111115
  6. AVONEX [Concomitant]
     Indication: MULTIPLE SCLEROSIS
     Route: 030
     Dates: start: 20060206
  7. SOLU-MEDROL [Concomitant]
     Indication: PREMEDICATION
     Route: 042

REACTIONS (7)
  - WHEEZING [None]
  - URTICARIA [None]
  - PRURITUS [None]
  - PARAESTHESIA [None]
  - OBSTRUCTIVE AIRWAYS DISORDER [None]
  - FLUSHING [None]
  - DYSPNOEA [None]
